FAERS Safety Report 5787446-4 (Version None)
Quarter: 2008Q2

REPORT INFORMATION
  Report Type: 
  Country: None (occurrence: None)
  Receive Date: 20080625
  Receipt Date: 20080616
  Transmission Date: 20081010
  Serious: Yes (Hospitalization)
  Sender: FDA-Public Use
  Company Number: TW-BRISTOL-MYERS SQUIBB COMPANY-14237259

PATIENT
  Age: 23 Year
  Sex: Female

DRUGS (2)
  1. ABILIFY [Suspect]
     Indication: SCHIZOPHRENIA
     Dosage: THERAPY DATES-12APR07-MAY08,DRUG INTERRUPTED AND RESTARTED ON INCREASED DOSE 10MG/D FRM 16JUN08-ONG
     Route: 048
     Dates: start: 20070412
  2. CLONAZEPAM [Concomitant]
     Dosage: DOSAGE FORM - TABLET
     Dates: start: 20080616

REACTIONS (1)
  - SCHIZOPHRENIA [None]
